FAERS Safety Report 23767181 (Version 2)
Quarter: 2024Q2

REPORT INFORMATION
  Report Type: Report from Study
  Country: PT (occurrence: PT)
  Receive Date: 20240422
  Receipt Date: 20240603
  Transmission Date: 20240716
  Serious: Yes (Other)
  Sender: FDA-Public Use
  Company Number: PT-GILEAD-2023-0618267

PATIENT
  Age: 71 Year
  Sex: Female

DRUGS (15)
  1. SACITUZUMAB GOVITECAN-HZIY [Suspect]
     Active Substance: SACITUZUMAB GOVITECAN-HZIY
     Indication: Triple negative breast cancer
     Dosage: 10 MG/KG, DAYS 1 AND 8 EACH 21 DAY CYCLE (26 CYCLES)
     Route: 042
     Dates: start: 202208, end: 20231229
  2. OMEPRAZOLE [Concomitant]
     Active Substance: DONEPEZIL HYDROCHLORIDE\OMEPRAZOLE\OMEPRAZOLE MAGNESIUM
  3. PREGABALIN [Concomitant]
     Active Substance: PREGABALIN
  4. TAPENTADOL [Concomitant]
     Active Substance: TAPENTADOL
  5. INSULIN DEGLUDEC [Concomitant]
     Active Substance: INSULIN DEGLUDEC
  6. ROSUVASTATIN [Concomitant]
     Active Substance: ROSUVASTATIN
  7. BISOPROLOL [Concomitant]
     Active Substance: BISOPROLOL\BISOPROLOL FUMARATE
  8. RAMIPRIL [Concomitant]
     Active Substance: RAMIPRIL
  9. LORAZEPAM [Concomitant]
     Active Substance: LORAZEPAM
  10. SUCRALFATE [Concomitant]
     Active Substance: SUCRALFATE
  11. DEXAMETHASONE [Concomitant]
     Active Substance: DEXAMETHASONE
  12. PALONOSETRON [Concomitant]
     Active Substance: PALONOSETRON
  13. CLEMASTINE [Concomitant]
     Active Substance: CLEMASTINE
  14. FAMOTIDINE [Concomitant]
     Active Substance: FAMOTIDINE
  15. ACETAMINOPHEN [Concomitant]
     Active Substance: ACETAMINOPHEN

REACTIONS (10)
  - Ischaemic stroke [Unknown]
  - Hemiplegia [Unknown]
  - Neutropenia [Recovered/Resolved]
  - Respiratory tract infection [Recovered/Resolved]
  - Anaemia [Not Recovered/Not Resolved]
  - Nausea [Recovering/Resolving]
  - Vomiting [Recovered/Resolved]
  - Diarrhoea [Recovering/Resolving]
  - Alopecia [Not Recovered/Not Resolved]
  - Asthenia [Recovering/Resolving]

NARRATIVE: CASE EVENT DATE: 20240101
